FAERS Safety Report 6559125-7 (Version None)
Quarter: 2010Q1

REPORT INFORMATION
  Report Type: 
  Country: None (occurrence: None)
  Receive Date: 20100129
  Receipt Date: 20100108
  Transmission Date: 20100710
  Serious: No
  Sender: FDA-Public Use
  Company Number: US-BAYER-201010006NA

PATIENT
  Age: 76 Year
  Sex: Male

DRUGS (4)
  1. LEVITRA [Suspect]
     Indication: ERECTILE DYSFUNCTION
     Route: 048
     Dates: start: 20070101
  2. PLAVIX [Concomitant]
  3. MINADRONE [Concomitant]
  4. FINASTERIDE [Concomitant]

REACTIONS (1)
  - ERECTILE DYSFUNCTION [None]
